FAERS Safety Report 6344635-8 (Version None)
Quarter: 2009Q3

REPORT INFORMATION
  Report Type: 
  Country: None (occurrence: None)
  Receive Date: 20090903
  Receipt Date: 20090822
  Transmission Date: 20100115
  Serious: Yes (Other)
  Sender: FDA-Public Use
  Company Number: 2009AP003436

PATIENT
  Sex: Female

DRUGS (12)
  1. RISPERIDONE [Suspect]
  2. VALPROIC ACID SYRUP [Suspect]
  3. ZIPRASIDONE HCL [Suspect]
     Indication: AGITATION
     Dosage: 40 MG;QD
  4. ZIPRASIDONE HCL [Suspect]
     Indication: PSYCHOTIC DISORDER
     Dosage: 40 MG;QD
  5. QUETIAPINE FUMARATE [Suspect]
     Indication: AGITATION
     Dosage: 25 MG;HS;
  6. QUETIAPINE FUMARATE [Suspect]
     Indication: PSYCHOTIC DISORDER
     Dosage: 25 MG;HS;
  7. OLANZAPINE [Suspect]
  8. TOPIRAMATE [Suspect]
  9. DULOXETINE HYDROCHLORIDE [Suspect]
  10. LORAZEPAM [Suspect]
     Indication: AGITATION
     Dosage: PO
     Route: 048
  11. LORAZEPAM [Suspect]
     Indication: PSYCHOTIC DISORDER
     Dosage: PO
     Route: 048
  12. FLUPHENAZINE [Concomitant]

REACTIONS (6)
  - AGITATION [None]
  - BLOOD CREATINE PHOSPHOKINASE INCREASED [None]
  - CONDITION AGGRAVATED [None]
  - PARANOIA [None]
  - PSYCHOTIC DISORDER [None]
  - THINKING ABNORMAL [None]
